FAERS Safety Report 13377743 (Version 1)
Quarter: 2017Q1

REPORT INFORMATION
  Report Type: Spontaneous
  Country: FR (occurrence: FR)
  Receive Date: 20170328
  Receipt Date: 20170328
  Transmission Date: 20170429
  Serious: Yes (Hospitalization, Other)
  Sender: FDA-Public Use
  Company Number: FR-PFIZER INC-2017075936

PATIENT
  Age: 22 Year
  Sex: Female

DRUGS (4)
  1. CYTOTEC [Suspect]
     Active Substance: MISOPROSTOL
     Dosage: 400 UG, TOTAL
     Route: 048
     Dates: start: 20160919, end: 20160919
  2. CYTOTEC [Suspect]
     Active Substance: MISOPROSTOL
     Indication: ABORTION INDUCED
     Dosage: 800 UG TOTAL
     Route: 048
     Dates: start: 20160916, end: 20160916
  3. MIFEGYNE [Suspect]
     Active Substance: MIFEPRISTONE
     Indication: ABORTION INDUCED
     Dosage: UNK
     Route: 048
     Dates: start: 20160916, end: 20160916
  4. CYTOTEC [Suspect]
     Active Substance: MISOPROSTOL
     Dosage: 800 UG, TOTAL
     Route: 048
     Dates: start: 20160918, end: 20160918

REACTIONS (5)
  - Haemoglobin decreased [Recovering/Resolving]
  - Metrorrhagia [Recovered/Resolved]
  - Orthostatic hypotension [Unknown]
  - Haemorrhagic anaemia [Recovering/Resolving]
  - Drug ineffective for unapproved indication [Recovered/Resolved]

NARRATIVE: CASE EVENT DATE: 20160916
